FAERS Safety Report 25584800 (Version 1)
Quarter: 2025Q3

REPORT INFORMATION
  Report Type: Spontaneous
  Country: GB (occurrence: GB)
  Receive Date: 20250721
  Receipt Date: 20250721
  Transmission Date: 20251020
  Serious: Yes (Other)
  Sender: SANDOZ
  Company Number: None

PATIENT
  Age: 77 Year
  Sex: Male
  Weight: 90 kg

DRUGS (1)
  1. PANTOPRAZOLE [Suspect]
     Active Substance: PANTOPRAZOLE
     Indication: Dyspepsia
     Dosage: 20MG ONCE A DAY
     Route: 065
     Dates: start: 20250305

REACTIONS (9)
  - Brain fog [Unknown]
  - Lymphadenopathy [Unknown]
  - Gait disturbance [Unknown]
  - Dyspnoea [Unknown]
  - Night sweats [Unknown]
  - Paraesthesia [Not Recovered/Not Resolved]
  - Dizziness [Unknown]
  - Fatigue [Unknown]
  - Nausea [Unknown]

NARRATIVE: CASE EVENT DATE: 20250420
